FAERS Safety Report 17529391 (Version 1)
Quarter: 2020Q1

REPORT INFORMATION
  Report Type: Spontaneous
  Country: US (occurrence: US)
  Receive Date: 20200311
  Receipt Date: 20200311
  Transmission Date: 20200409
  Serious: No
  Sender: FDA-Public Use
  Company Number: US-NEUROCRINE BIOSCIENCES INC.-2020NBI00687

PATIENT
  Age: 55 Year
  Sex: Male

DRUGS (6)
  1. INGREZZA [Suspect]
     Active Substance: VALBENAZINE
     Indication: TARDIVE DYSKINESIA
     Dates: start: 201912
  2. INGREZZA [Suspect]
     Active Substance: VALBENAZINE
     Dates: start: 20200211, end: 20200225
  3. INGREZZA [Suspect]
     Active Substance: VALBENAZINE
     Dates: start: 20200226
  4. OLANZAPINE. [Concomitant]
     Active Substance: OLANZAPINE
  5. TRAZODONE [Concomitant]
     Active Substance: TRAZODONE HYDROCHLORIDE
  6. DEPAKOTE [Concomitant]
     Active Substance: DIVALPROEX SODIUM

REACTIONS (1)
  - Tremor [Unknown]

NARRATIVE: CASE EVENT DATE: 202002
